FAERS Safety Report 8469638-9 (Version None)
Quarter: 2012Q2

REPORT INFORMATION
  Report Type: 
  Country: None (occurrence: None)
  Receive Date: 20120626
  Receipt Date: 20120525
  Transmission Date: 20120825
  Serious: No
  Sender: FDA-Public Use
  Company Number: US-TEVA-340478USA

PATIENT
  Sex: Female
  Weight: 52.21 kg

DRUGS (3)
  1. QNASL [Suspect]
     Indication: HYPERSENSITIVITY
     Dosage: 320 MCG
     Dates: start: 20120509
  2. MONTELUKAST [Concomitant]
  3. CETIRIZINE HYDROCHLORIDE [Concomitant]

REACTIONS (3)
  - RHINITIS [None]
  - EPISTAXIS [None]
  - NASAL DISCOMFORT [None]
